FAERS Safety Report 21866395 (Version 1)
Quarter: 2023Q1

REPORT INFORMATION
  Report Type: Spontaneous
  Country: FR (occurrence: FR)
  Receive Date: 20230116
  Receipt Date: 20230116
  Transmission Date: 20230418
  Serious: Yes (Hospitalization)
  Sender: FDA-Public Use
  Company Number: None

PATIENT
  Age: 58 Year
  Sex: Female

DRUGS (2)
  1. AFINITOR [Suspect]
     Active Substance: EVEROLIMUS
     Indication: Breast cancer
     Dosage: 5 MG, QD
     Route: 065
     Dates: start: 20221026, end: 20221122
  2. XGEVA [Concomitant]
     Active Substance: DENOSUMAB
     Indication: Metastatic bone disease prophylaxis
     Dosage: 120 MG, QMO
     Route: 065
     Dates: start: 20220809, end: 20221114

REACTIONS (3)
  - Interstitial lung disease [Recovering/Resolving]
  - Pleural effusion [Recovering/Resolving]
  - Pericardial effusion [Recovering/Resolving]

NARRATIVE: CASE EVENT DATE: 20221101
